FAERS Safety Report 18587890 (Version 7)
Quarter: 2024Q4

REPORT INFORMATION
  Report Type: Report from Study
  Country: DE (occurrence: DE)
  Receive Date: 20201207
  Receipt Date: 20241119
  Transmission Date: 20250115
  Serious: Yes (Hospitalization, Other)
  Sender: TAKEDA
  Company Number: DE-SHIRE-DE202017211

PATIENT
  Age: 73 Year
  Sex: Male
  Weight: 105 kg

DRUGS (13)
  1. TEDUGLUTIDE [Suspect]
     Active Substance: TEDUGLUTIDE
     Indication: Short-bowel syndrome
     Dosage: 2 MILLIGRAM, QD
     Dates: start: 20160114, end: 20160522
  2. TEDUGLUTIDE [Suspect]
     Active Substance: TEDUGLUTIDE
     Dosage: 3.75 MILLIGRAM
     Dates: start: 20160526, end: 201608
  3. TEDUGLUTIDE [Suspect]
     Active Substance: TEDUGLUTIDE
     Dosage: 5 MILLIGRAM, QD
     Dates: start: 201608, end: 201609
  4. TEDUGLUTIDE [Suspect]
     Active Substance: TEDUGLUTIDE
     Dosage: 2 MILLIGRAM, QD
     Dates: start: 201609
  5. FERINJECT [Concomitant]
     Active Substance: FERRIC CARBOXYMALTOSE
     Indication: Product used for unknown indication
     Dosage: UNK
  6. NATRIUM [Concomitant]
     Indication: Product used for unknown indication
     Dosage: UNK
  7. PREDNISONE [Concomitant]
     Active Substance: PREDNISONE
     Indication: Gout
  8. SULTAMICILLIN [Concomitant]
     Active Substance: SULTAMICILLIN
     Indication: Antibiotic therapy
     Dosage: 375 MILLIGRAM, BID
     Dates: start: 20200709, end: 20200711
  9. SULTAMICILLIN [Concomitant]
     Active Substance: SULTAMICILLIN
     Dosage: 375 MILLIGRAM, BID
     Dates: start: 20200710, end: 20200717
  10. Jonosteril [Concomitant]
     Indication: Metabolic acidosis
     Dosage: UNK, 2-2 TIMES A WEEK
  11. METAMIZOLE [Concomitant]
     Active Substance: METAMIZOLE
     Indication: Pain
     Dosage: 500 MILLIGRAM, QID
     Dates: start: 20210123
  12. AZITHROMYCIN [Concomitant]
     Active Substance: AZITHROMYCIN
     Indication: Campylobacter gastroenteritis
     Dosage: UNK
     Dates: start: 20210123, end: 20210125
  13. SULTAMICILLIN [Concomitant]
     Active Substance: SULTAMICILLIN
     Indication: Antibiotic therapy
     Dosage: 375 MILLIGRAM, BID
     Dates: start: 20200709, end: 20200711

REACTIONS (3)
  - Nephrolithiasis [Recovered/Resolved]
  - Gout [Recovered/Resolved with Sequelae]
  - Nocturia [Recovered/Resolved]

NARRATIVE: CASE EVENT DATE: 20200501
